FAERS Safety Report 4381750-2 (Version None)
Quarter: 2004Q2

REPORT INFORMATION
  Report Type: 
  Country: None (occurrence: None)
  Receive Date: 20040615
  Receipt Date: 20030829
  Transmission Date: 20050107
  Serious: Yes (Hospitalization)
  Sender: FDA-Public Use
  Company Number: US-JNJFOC-20040506718

PATIENT
  Age: 54 Year
  Sex: Female

DRUGS (9)
  1. PEPCID AC [Suspect]
     Indication: DYSPEPSIA
     Dosage: 10 MG, 1 IN 1 DAY, ORAL
     Route: 048
     Dates: start: 20030828, end: 20030829
  2. NEURONTIN [Concomitant]
  3. EFFEXOR XR [Concomitant]
  4. TEMAZEPAM [Concomitant]
  5. TRAZODONE HCL [Concomitant]
  6. LEVOTHROID [Concomitant]
  7. KLONOPIN [Concomitant]
  8. ATENOLOL [Concomitant]
  9. HYDROCODONE [Concomitant]

REACTIONS (4)
  - ABDOMINAL PAIN [None]
  - PANCREATIC DISORDER [None]
  - RENAL DISORDER [None]
  - STOMACH DISCOMFORT [None]
